FAERS Safety Report 4915987-8 (Version None)
Quarter: 2006Q1

REPORT INFORMATION
  Report Type: 
  Country: None (occurrence: None)
  Receive Date: 20060214
  Receipt Date: 20060125
  Transmission Date: 20060701
  Serious: Yes (Hospitalization, Other)
  Sender: FDA-Public Use
  Company Number: US200601001642

PATIENT
  Sex: Female
  Weight: 78 kg

DRUGS (5)
  1. FORTEO [Suspect]
     Indication: OSTEOPOROSIS
     Dosage: 20 UG, DAILY (1/D),
     Dates: start: 20030423, end: 20050210
  2. FORTEO [Concomitant]
  3. TYLENOL /USA/ (PARACETAMOL) [Concomitant]
  4. OXYCONTIN [Concomitant]
  5. ACTONEL /USA/ (RISEDRONATE SODIUM) [Concomitant]

REACTIONS (3)
  - BODY HEIGHT DECREASED [None]
  - DRUG INEFFECTIVE [None]
  - SPINAL COLUMN STENOSIS [None]
